FAERS Safety Report 6227972-7 (Version None)
Quarter: 2009Q2

REPORT INFORMATION
  Report Type: 
  Country: None (occurrence: None)
  Receive Date: 20090611
  Receipt Date: 20090603
  Transmission Date: 20091009
  Serious: Yes (Hospitalization)
  Sender: FDA-Public Use
  Company Number: US-GENENTECH-284298

PATIENT
  Sex: Female
  Weight: 63.084 kg

DRUGS (10)
  1. BEVACIZUMAB [Suspect]
     Indication: COLORECTAL CANCER METASTATIC
     Dosage: 5 MG/KG, Q2W
     Route: 042
     Dates: start: 20071127
  2. MORPHINE [Suspect]
     Indication: PAIN
     Dosage: 15 MG, PRN
     Route: 048
     Dates: start: 20090530
  3. LORTAB [Suspect]
     Indication: PAIN
     Dosage: 10 MG, PRN
     Route: 048
     Dates: start: 20090317
  4. FLUOROURACIL [Concomitant]
     Indication: COLORECTAL CANCER
     Dosage: UNK
     Route: 042
     Dates: start: 20071127
  5. CAMPTOSAR [Concomitant]
     Indication: COLORECTAL CANCER
     Dosage: UNK
     Route: 042
     Dates: start: 20090527
  6. LEUCOVORIN CALCIUM [Concomitant]
     Indication: COLORECTAL CANCER
     Dosage: UNK
     Route: 042
     Dates: start: 20071127
  7. BYSTOLIC [Concomitant]
     Indication: HYPERTENSION
     Dosage: 10 MG, QD
     Route: 048
     Dates: start: 20090302
  8. COUMADIN [Concomitant]
     Indication: INTRAVENOUS CATHETER MANAGEMENT
     Dosage: 1 MG, QD
     Route: 048
     Dates: start: 20090119
  9. LISINOPRIL [Concomitant]
     Indication: HYPERTENSION
     Dosage: 20 MG, QD
     Route: 048
     Dates: start: 20090128
  10. CRESTOR [Concomitant]
     Indication: BLOOD CHOLESTEROL INCREASED
     Dosage: 10 MG, QD
     Route: 048
     Dates: start: 20050408

REACTIONS (1)
  - ANAL ULCER [None]
